FAERS Safety Report 19584698 (Version 4)
Quarter: 2021Q4

REPORT INFORMATION
  Report Type: Report from Study
  Country: ES (occurrence: ES)
  Receive Date: 20210720
  Receipt Date: 20211201
  Transmission Date: 20220303
  Serious: Yes (Hospitalization)
  Sender: FDA-Public Use
  Company Number: ES-IPSEN GROUP, RESEARCH AND DEVELOPMENT-2021-09801

PATIENT
  Age: 73 Year
  Sex: Female
  Weight: 56 kg

DRUGS (1)
  1. CABOZANTINIB [Suspect]
     Active Substance: CABOZANTINIB
     Indication: Renal cell carcinoma
     Dosage: 60 MG, QD
     Route: 048
     Dates: start: 20210331, end: 20210513

REACTIONS (7)
  - Electrocardiogram QT prolonged [Recovered/Resolved]
  - Coagulopathy [Recovered/Resolved]
  - Vomiting [Recovered/Resolved]
  - Hypothyroidism [Not Recovered/Not Resolved]
  - Nausea [Recovering/Resolving]
  - Asthenia [Recovering/Resolving]
  - Decreased appetite [Recovering/Resolving]

NARRATIVE: CASE EVENT DATE: 20210415
